FAERS Safety Report 7838028 (Version 4)
Quarter: 2014Q3

REPORT INFORMATION
  Report Type: Spontaneous
  Country: US (occurrence: US)
  Receive Date: 20110302
  Receipt Date: 20140806
  Transmission Date: 20150326
  Serious: Yes (Hospitalization, Other)
  Sender: FDA-Public Use
  Company Number: US-US-EMD SERONO, INC.-7044181

PATIENT
  Age: 49 Year
  Sex: Female

DRUGS (1)
  1. REBIF [Suspect]
     Active Substance: INTERFERON BETA-1A
     Indication: MULTIPLE SCLEROSIS
     Route: 058
     Dates: start: 20041025

REACTIONS (5)
  - Cholelithiasis [Unknown]
  - Sickle cell anaemia with crisis [Unknown]
  - Renal cyst [Unknown]
  - Irritable bowel syndrome [Unknown]
  - Multiple sclerosis relapse [Unknown]

NARRATIVE: CASE EVENT DATE: 201102
